FAERS Safety Report 8847927 (Version 1)
Quarter: 2012Q4

REPORT INFORMATION
  Report Type: 
  Country: US (occurrence: US)
  Receive Date: 20121018
  Receipt Date: 20121018
  Transmission Date: 20130627
  Serious: No
  Sender: FDA-Public Use
  Company Number: US-009507513-1210USA001755

PATIENT
  Age: 24 Year
  Sex: Female
  Weight: 65.76 kg

DRUGS (1)
  1. IMPLANON [Suspect]
     Indication: CONTRACEPTION
     Dosage: 1 rod every 3 years
     Dates: start: 20120209

REACTIONS (3)
  - Device breakage [Unknown]
  - Injury [Unknown]
  - Device extrusion [Unknown]
